FAERS Safety Report 10588998 (Version 1)
Quarter: 2014Q4

REPORT INFORMATION
  Report Type: Spontaneous
  Country: PH (occurrence: PH)
  Receive Date: 20141117
  Receipt Date: 20141117
  Transmission Date: 20150529
  Serious: Yes (Death, Other)
  Sender: FDA-Public Use
  Company Number: PH-009507513-1411PHL007139

PATIENT
  Age: 51 Year
  Sex: Male

DRUGS (1)
  1. JANUVIA [Suspect]
     Active Substance: SITAGLIPTIN PHOSPHATE
     Indication: DIABETES MELLITUS
     Dosage: STRENGTH 50MG, ONE TABLET, ONCE A DAY
     Route: 048
     Dates: start: 201403, end: 2014

REACTIONS (1)
  - Myocardial infarction [Fatal]

NARRATIVE: CASE EVENT DATE: 2014
